FAERS Safety Report 13108551 (Version 4)
Quarter: 2017Q4

REPORT INFORMATION
  Report Type: Spontaneous
  Country: GB (occurrence: GB)
  Receive Date: 20170112
  Receipt Date: 20171017
  Transmission Date: 20180320
  Serious: Yes (Hospitalization, Other)
  Sender: FDA-Public Use
  Company Number: GB-PFIZER INC-2016337866

PATIENT
  Age: 49 Year
  Sex: Male

DRUGS (9)
  1. PREDNISOLONE. [Suspect]
     Active Substance: PREDNISOLONE
     Dosage: STANDARD REDUCING COURSE; DECREASING DOSE BY 5 MG PER WEEK
     Route: 048
  2. CICLOSPORIN [Concomitant]
     Active Substance: CYCLOSPORINE
     Dosage: 200 MG, 2X/DAY
     Dates: start: 20140812
  3. METHYLPREDNISOLONE SODIUM SUCCINATE. [Suspect]
     Active Substance: METHYLPREDNISOLONE SODIUM SUCCINATE
     Indication: COLITIS ULCERATIVE
     Dosage: 30 MG, 2X/DAY
     Route: 042
  4. PREDNISOLONE. [Suspect]
     Active Substance: PREDNISOLONE
     Dosage: STANDARD REDUCING COURSE; DECREASING DOSE BY 5 MG PER WEEK
     Route: 048
  5. PREDNISOLONE. [Suspect]
     Active Substance: PREDNISOLONE
     Indication: COLITIS ULCERATIVE
     Dosage: 40 MG DAILY; DECREASING DOSE BY 5 MG PER WEEK
     Route: 048
  6. PREDNISOLONE. [Suspect]
     Active Substance: PREDNISOLONE
     Dosage: STANDARD REDUCING COURSE; DECREASING DOSE BY 5 MG PER WEEK
     Route: 048
  7. PREDNISOLONE. [Suspect]
     Active Substance: PREDNISOLONE
     Dosage: STANDARD REDUCING COURSE; DECREASING DOSE BY 5 MG PER WEEK
     Route: 048
  8. CICLOSPORIN [Concomitant]
     Active Substance: CYCLOSPORINE
     Indication: COLITIS ULCERATIVE
     Dosage: UNK  (ON DAY 5)
  9. PREDNISOLONE. [Suspect]
     Active Substance: PREDNISOLONE
     Dosage: STANDARD REDUCING COURSE; DECREASING DOSE BY 5 MG PER WEEK
     Route: 048

REACTIONS (6)
  - Epidural lipomatosis [Recovering/Resolving]
  - Spinal cord compression [Recovering/Resolving]
  - Sensory loss [Recovering/Resolving]
  - Neuralgia [Unknown]
  - Cushing^s syndrome [Unknown]
  - Muscular weakness [Recovered/Resolved]
